FAERS Safety Report 6417997-0 (Version None)
Quarter: 2009Q4

REPORT INFORMATION
  Report Type: 
  Country: None (occurrence: None)
  Receive Date: 20091028
  Receipt Date: 20091026
  Transmission Date: 20100525
  Serious: Yes (Death)
  Sender: FDA-Public Use
  Company Number: DE-BRISTOL-MYERS SQUIBB COMPANY-14782536

PATIENT
  Age: 69 Year
  Sex: Female
  Weight: 80 kg

DRUGS (6)
  1. TAXOL [Suspect]
     Indication: BREAST CANCER METASTATIC
     Dosage: LAST INFUSION ON 02SEP2009
     Route: 042
     Dates: end: 20090902
  2. AVASTIN [Suspect]
     Indication: BREAST CANCER METASTATIC
     Dosage: TOTAL 3 APPLICATION AT 15MG/KG/BODY WEIGHT ON 15JUL09,05AUG09 AND 26AUG09
     Route: 042
     Dates: start: 20090715, end: 20090826
  3. DEXAMETHASONE [Concomitant]
  4. OMEPRAZOLE [Concomitant]
  5. NOVALGIN [Concomitant]
     Dosage: NOVALGIN-CHININ (DIPYRONE CALCIUM SALT/DIPYRONE QUININE SALT).
  6. METAMIZOLE [Concomitant]

REACTIONS (4)
  - LARGE INTESTINE PERFORATION [None]
  - MULTI-ORGAN FAILURE [None]
  - PERITONEAL INFECTION [None]
  - SEPSIS [None]
